FAERS Safety Report 21341074 (Version 1)
Quarter: 2022Q3

REPORT INFORMATION
  Report Type: Report from Study
  Country: JP (occurrence: JP)
  Receive Date: 20220916
  Receipt Date: 20220916
  Transmission Date: 20221027
  Serious: Yes (Death, Hospitalization)
  Sender: FDA-Public Use
  Company Number: JP-JNJFOC-A-CH2018-184111

PATIENT
  Age: 75 Year
  Sex: Female

DRUGS (11)
  1. OPSUMIT [Suspect]
     Active Substance: MACITENTAN
     Indication: Pulmonary arterial hypertension
     Dosage: 2.5 MG, QD
     Route: 048
     Dates: start: 20161209, end: 20161219
  2. OPSUMIT [Suspect]
     Active Substance: MACITENTAN
     Dosage: 5 MG, QD
     Route: 048
     Dates: start: 20161220, end: 20161225
  3. OPSUMIT [Suspect]
     Active Substance: MACITENTAN
     Dosage: 10 MG, QD
     Route: 048
     Dates: start: 20161226, end: 20171108
  4. URSO [Concomitant]
     Active Substance: URSODIOL
     Indication: Hepatic cirrhosis
     Route: 048
     Dates: start: 20171108
  5. FUROSEMIDE [Concomitant]
     Active Substance: FUROSEMIDE
     Indication: Pulmonary arterial hypertension
     Route: 048
     Dates: start: 20171108
  6. AMINO ACIDS, SOURCE UNSPECIFIED [Concomitant]
     Active Substance: AMINO ACIDS, SOURCE UNSPECIFIED
     Indication: Hepatic cirrhosis
     Route: 048
     Dates: end: 20171108
  7. NEXIUM [Concomitant]
     Active Substance: ESOMEPRAZOLE MAGNESIUM
     Indication: Gastritis prophylaxis
     Route: 048
  8. NEXIUM [Concomitant]
     Active Substance: ESOMEPRAZOLE MAGNESIUM
     Route: 048
     Dates: end: 20171108
  9. SPIRONOLACTONE [Concomitant]
     Active Substance: SPIRONOLACTONE
     Indication: Pulmonary arterial hypertension
     Route: 048
     Dates: start: 20170131, end: 20171029
  10. SPIRONOLACTONE [Concomitant]
     Active Substance: SPIRONOLACTONE
     Dosage: THERAPY END DATE 08-NOV-2017
     Route: 048
     Dates: start: 20171030, end: 20171108
  11. SAMSCA [Concomitant]
     Active Substance: TOLVAPTAN
     Indication: Fluid retention
     Dosage: THERAPY END DATE 08/OCT/2017
     Route: 048
     Dates: start: 20171030, end: 20171108

REACTIONS (5)
  - Hepatic cirrhosis [Fatal]
  - Hepatic failure [Fatal]
  - Disease progression [Fatal]
  - Aspartate aminotransferase increased [Fatal]
  - Blood bilirubin abnormal [Fatal]

NARRATIVE: CASE EVENT DATE: 20171001
